FAERS Safety Report 18164810 (Version 2)
Quarter: 2020Q3

REPORT INFORMATION
  Report Type: Spontaneous
  Country: TR (occurrence: TR)
  Receive Date: 20200818
  Receipt Date: 20200827
  Transmission Date: 20201103
  Serious: Yes (Hospitalization, Other)
  Sender: FDA-Public Use
  Company Number: TR-BAYER-2020-061732

PATIENT
  Age: 35 Year
  Sex: Female

DRUGS (3)
  1. QLAIRISTA [Suspect]
     Active Substance: DIENOGEST\ESTRADIOL VALERATE
     Indication: MENSTRUATION IRREGULAR
  2. QLAIRISTA [Suspect]
     Active Substance: DIENOGEST\ESTRADIOL VALERATE
     Indication: CONTRACEPTION
  3. QLAIRISTA [Suspect]
     Active Substance: DIENOGEST\ESTRADIOL VALERATE
     Indication: MENORRHAGIA
     Dosage: UNK
     Route: 048

REACTIONS (5)
  - Ectopic pregnancy under hormonal contraception [Recovered/Resolved]
  - Hypovolaemic shock [Recovered/Resolved]
  - Internal haemorrhage [Recovered/Resolved]
  - Drug ineffective [None]
  - Ruptured ectopic pregnancy [Recovered/Resolved]
